FAERS Safety Report 12230440 (Version 1)
Quarter: 2016Q2

REPORT INFORMATION
  Report Type: Spontaneous
  Country: US (occurrence: US)
  Receive Date: 20160401
  Receipt Date: 20160401
  Transmission Date: 20160815
  Serious: No
  Sender: FDA-Public Use
  Company Number: US-WATSON-2015-18189

PATIENT
  Sex: Female

DRUGS (1)
  1. ESTRADIOL (WATSON LABORATORIES) [Suspect]
     Active Substance: ESTRADIOL
     Indication: PRODUCT USED FOR UNKNOWN INDICATION
     Dosage: 0.5 MG, DAILY
     Route: 048
     Dates: start: 20150130, end: 20150515

REACTIONS (2)
  - Pain [Recovered/Resolved]
  - Arthralgia [Recovered/Resolved]
